FAERS Safety Report 7583726-0 (Version None)
Quarter: 2011Q2

REPORT INFORMATION
  Report Type: 
  Country: None (occurrence: None)
  Receive Date: 20110630
  Receipt Date: 20110623
  Transmission Date: 20111010
  Serious: Yes (Hospitalization)
  Sender: FDA-Public Use
  Company Number: B0729602A

PATIENT
  Sex: Female

DRUGS (3)
  1. ASPIRIN [Concomitant]
  2. LANOXIN [Suspect]
     Dosage: .125MG PER DAY
     Route: 048
     Dates: start: 20110101, end: 20110525
  3. VALSARTAN [Concomitant]

REACTIONS (3)
  - TOXICITY TO VARIOUS AGENTS [None]
  - ATRIOVENTRICULAR BLOCK [None]
  - BLOOD CREATININE INCREASED [None]
